FAERS Safety Report 16534454 (Version 1)
Quarter: 2019Q3

REPORT INFORMATION
  Report Type: Spontaneous
  Country: ES (occurrence: ES)
  Receive Date: 20190705
  Receipt Date: 20190705
  Transmission Date: 20191004
  Serious: Yes (Hospitalization)
  Sender: FDA-Public Use
  Company Number: ES-AMGEN-ESPSP2019104215

PATIENT
  Age: 60 Year
  Sex: Female

DRUGS (1)
  1. PROLIA [Suspect]
     Active Substance: DENOSUMAB
     Indication: PRODUCT USED FOR UNKNOWN INDICATION
     Dosage: 60 MILLIGRAM, Q6WK
     Route: 058
     Dates: start: 20170914, end: 201808

REACTIONS (3)
  - Drug ineffective [Recovered/Resolved with Sequelae]
  - Lumbar vertebral fracture [Recovered/Resolved with Sequelae]
  - Thoracic vertebral fracture [Recovered/Resolved with Sequelae]

NARRATIVE: CASE EVENT DATE: 20181109
